FAERS Safety Report 6036568-1 (Version None)
Quarter: 2009Q1

REPORT INFORMATION
  Report Type: 
  Country: None (occurrence: None)
  Receive Date: 20090112
  Receipt Date: 20090105
  Transmission Date: 20090719
  Serious: Yes (Death, Hospitalization, Other)
  Sender: FDA-Public Use
  Company Number: A-JP2007-15896

PATIENT
  Age: 51 Year
  Sex: Female
  Weight: 44 kg

DRUGS (13)
  1. TRACLEER [Suspect]
     Indication: PULMONARY HYPERTENSION
     Dosage: 125 MG, BID, ORAL; 62.5 MG, BID, ORAL; 62.5 MG, QD, ORAL
     Route: 048
     Dates: start: 20050715, end: 20050730
  2. TRACLEER [Suspect]
     Indication: PULMONARY HYPERTENSION
     Dosage: 125 MG, BID, ORAL; 62.5 MG, BID, ORAL; 62.5 MG, QD, ORAL
     Route: 048
     Dates: start: 20050731, end: 20060603
  3. TRACLEER [Suspect]
     Indication: PULMONARY HYPERTENSION
     Dosage: 125 MG, BID, ORAL; 62.5 MG, BID, ORAL; 62.5 MG, QD, ORAL
     Route: 048
     Dates: end: 20060802
  4. TRACLEER [Suspect]
     Indication: PULMONARY HYPERTENSION
     Dosage: 125 MG, BID, ORAL; 62.5 MG, BID, ORAL; 62.5 MG, QD, ORAL
     Route: 048
     Dates: end: 20070723
  5. TRACLEER [Suspect]
     Indication: PULMONARY HYPERTENSION
     Dosage: 125 MG, BID, ORAL; 62.5 MG, BID, ORAL; 62.5 MG, QD, ORAL
     Route: 048
     Dates: start: 20060703
  6. TRACLEER [Suspect]
     Indication: PULMONARY HYPERTENSION
     Dosage: 125 MG, BID, ORAL; 62.5 MG, BID, ORAL; 62.5 MG, QD, ORAL
     Route: 048
     Dates: start: 20060803
  7. WARFARIN SODIUM [Concomitant]
  8. CLOTIAZEPAM (CLOTIAZEPAM) [Concomitant]
  9. PAROXETINE HCL [Concomitant]
  10. FLUNITRAZEPAM (FLUNITRAZEPAM) [Concomitant]
  11. OXYGEN (OXYGEN) [Concomitant]
  12. FUROSEMIDE (FUROSEMIDE) [Concomitant]
  13. SPIRONOLACTONE [Concomitant]

REACTIONS (20)
  - ALANINE AMINOTRANSFERASE INCREASED [None]
  - ALTERED STATE OF CONSCIOUSNESS [None]
  - ASPARTATE AMINOTRANSFERASE INCREASED [None]
  - CARDIAC FAILURE [None]
  - CHEST PAIN [None]
  - CONDITION AGGRAVATED [None]
  - CONVULSION [None]
  - DEPRESSIVE SYMPTOM [None]
  - DISEASE PROGRESSION [None]
  - DRUG INEFFECTIVE [None]
  - GENERAL PHYSICAL HEALTH DETERIORATION [None]
  - HEPATIC CONGESTION [None]
  - HEPATIC FUNCTION ABNORMAL [None]
  - HYPOPROTEINAEMIA [None]
  - INTENTIONAL OVERDOSE [None]
  - LOW CARDIAC OUTPUT SYNDROME [None]
  - OEDEMA [None]
  - PULMONARY HYPERTENSION [None]
  - RENAL DISORDER [None]
  - RIGHT VENTRICULAR FAILURE [None]
